FAERS Safety Report 6643732-7 (Version None)
Quarter: 2010Q1

REPORT INFORMATION
  Report Type: 
  Country: None (occurrence: None)
  Receive Date: 20100322
  Receipt Date: 20100315
  Transmission Date: 20100710
  Serious: Yes (Hospitalization)
  Sender: FDA-Public Use
  Company Number: US-BIOGENIDEC-2009BI038607

PATIENT
  Age: 44 Year
  Sex: Female

DRUGS (2)
  1. AVONEX [Suspect]
     Indication: MULTIPLE SCLEROSIS
     Route: 030
     Dates: start: 19980101, end: 20080602
  2. AVONEX [Suspect]
     Route: 030
     Dates: start: 20091120, end: 20100101

REACTIONS (4)
  - DEPRESSION [None]
  - FEMUR FRACTURE [None]
  - PAIN [None]
  - SUICIDAL IDEATION [None]
